FAERS Safety Report 8942346 (Version 1)
Quarter: 2012Q4

REPORT INFORMATION
  Report Type: Spontaneous
  Country: US (occurrence: None)
  Receive Date: 20121123
  Receipt Date: 20121123
  Transmission Date: 20130627
  Serious: Yes (Other)
  Sender: FDA-Public Use
  Company Number: DSA_03707_2012

PATIENT
  Sex: Female
  Weight: 81.65 kg

DRUGS (3)
  1. VANIQA [Suspect]
     Indication: HAIR GROWTH ABNORMAL
     Dosage: (Applied above upper lip and below lower lip area Topical)
     Route: 061
     Dates: start: 201201, end: 20120721
  2. LIBENZAPRIL [Concomitant]
  3. LEVETIRACETAM [Concomitant]

REACTIONS (2)
  - Scab [None]
  - Rash pruritic [None]
